FAERS Safety Report 15152389 (Version 1)
Quarter: 2018Q3

REPORT INFORMATION
  Report Type: Spontaneous
  Country: US (occurrence: US)
  Receive Date: 20180717
  Receipt Date: 20180717
  Transmission Date: 20181010
  Serious: Yes (Hospitalization, Other)
  Sender: FDA-Public Use
  Company Number: US-ZYDUS-020837

PATIENT
  Age: 65 Year
  Sex: Male

DRUGS (2)
  1. RIBAVIRIN. [Suspect]
     Active Substance: RIBAVIRIN
     Indication: ANTIVIRAL TREATMENT
     Route: 065
  2. SOFOSBUVIR [Suspect]
     Active Substance: SOFOSBUVIR
     Indication: ANTIVIRAL TREATMENT
     Route: 065

REACTIONS (7)
  - Acute myocardial infarction [Unknown]
  - Vomiting [Unknown]
  - Ischaemia [Unknown]
  - Electrocardiogram abnormal [Unknown]
  - Nausea [Unknown]
  - Asthenia [Unknown]
  - Chest pain [Unknown]
